FAERS Safety Report 5382215-1 (Version None)
Quarter: 2007Q3

REPORT INFORMATION
  Report Type: 
  Country: None (occurrence: None)
  Receive Date: 20070709
  Receipt Date: 20070627
  Transmission Date: 20080115
  Serious: Yes (Other)
  Sender: FDA-Public Use
  Company Number: HQWYE841528JUN07

PATIENT
  Sex: Female

DRUGS (7)
  1. EFFEXOR [Suspect]
     Dosage: 150 MG, FREQUENCY UNKNOWN
  2. EFFEXOR [Suspect]
     Dosage: 300 MG,  FREQUENCY UNKNOWN
  3. TRILEPTAL [Suspect]
     Dosage: UNKNOWN
  4. BACTRIM [Suspect]
     Dosage: UNKNOWN
     Dates: start: 20070215
  5. LAMICTAL [Suspect]
     Dosage: UNKNOWN
  6. PEGASYS [Suspect]
     Dosage: UNKNOWN
     Dates: start: 20060515, end: 20070309
  7. RIBAVIRIN [Suspect]
     Dosage: UNKNOWN
     Dates: start: 20060515, end: 20070309

REACTIONS (6)
  - BONE PAIN [None]
  - FATIGUE [None]
  - FOOD ALLERGY [None]
  - NERVOUS SYSTEM DISORDER [None]
  - NEUROPATHY [None]
  - STEVENS-JOHNSON SYNDROME [None]
